FAERS Safety Report 4415056-X (Version None)
Quarter: 2004Q3

REPORT INFORMATION
  Report Type: 
  Country: None (occurrence: None)
  Receive Date: 20040803
  Receipt Date: 20040803
  Transmission Date: 20050211
  Serious: Yes (Life-Threatening, Hospitalization)
  Sender: FDA-Public Use
  Company Number: None

PATIENT
  Age: 57 Year
  Sex: Male
  Weight: 71.6 kg

DRUGS (11)
  1. METHOTREXATE [Suspect]
     Indication: ACUTE LYMPHOCYTIC LEUKAEMIA
     Dosage: 12.5 MG IT X 1
     Route: 037
     Dates: start: 20040702
  2. PREDNISONE [Suspect]
     Indication: ACUTE LYMPHOCYTIC LEUKAEMIA
     Dosage: 110 MG PO QD
     Route: 048
     Dates: start: 20040703
  3. DAUNORUBICIN [Concomitant]
  4. VINCRISTINE [Concomitant]
  5. AMBISOME [Concomitant]
  6. VALACYCLOVIR HCL [Concomitant]
  7. NORFLOXACIN [Concomitant]
  8. BACTRIM [Concomitant]
  9. ZOSYN [Concomitant]
  10. VANCOMYCIN [Concomitant]
  11. PANTOPRAZOLE [Concomitant]

REACTIONS (11)
  - AUTONOMIC NEUROPATHY [None]
  - CONFUSIONAL STATE [None]
  - CONSTIPATION [None]
  - DEHYDRATION [None]
  - DISORIENTATION [None]
  - GASTROINTESTINAL HAEMORRHAGE [None]
  - HEADACHE [None]
  - HYPERTENSIVE CRISIS [None]
  - HYPOTENSION [None]
  - NEUROPATHIC PAIN [None]
  - ORTHOSTATIC HYPOTENSION [None]
